FAERS Safety Report 5216647-9 (Version None)
Quarter: 2007Q1

REPORT INFORMATION
  Report Type: 
  Country: None (occurrence: None)
  Receive Date: 20061130
  Receipt Date: 20060620
  Transmission Date: 20070707
  Serious: Yes (Hospitalization, Other)
  Sender: FDA-Public Use
  Company Number: US200606005087

PATIENT
  Age: 31 Year
  Sex: Male
  Weight: 122.4 kg

DRUGS (4)
  1. ZYPREXA [Suspect]
     Dosage: SEE IMAGE
     Dates: start: 19960101, end: 20030201
  2. RISPERDAL /SWE/ (RISPERIDONE) [Concomitant]
  3. CLONAPIN (CLONAZEPAM) [Concomitant]
  4. HYDROCHLORIDE (HYDROCHLOROTHIAZIDE) [Concomitant]

REACTIONS (9)
  - DIABETES MELLITUS [None]
  - DIABETIC KETOACIDOSIS [None]
  - GLYCOSURIA [None]
  - HYPERGLYCAEMIA [None]
  - HYPERTENSION [None]
  - PANCREATITIS [None]
  - POLYDIPSIA [None]
  - VISION BLURRED [None]
  - WEIGHT DECREASED [None]
